FAERS Safety Report 9439956 (Version 1)
Quarter: 2013Q3

REPORT INFORMATION
  Report Type: Spontaneous
  Country: US (occurrence: US)
  Receive Date: 20130805
  Receipt Date: 20130805
  Transmission Date: 20140515
  Serious: Yes (Hospitalization)
  Sender: FDA-Public Use
  Company Number: US-ELI_LILLY_AND_COMPANY-US201307010003

PATIENT
  Sex: Female

DRUGS (5)
  1. HUMALOG 25% LISPRO, 75% NPL [Suspect]
     Indication: DIABETES MELLITUS
     Dosage: UNK UNK, EVERY 6 HRS
     Dates: start: 2003
  2. HUMALOG LISPRO [Suspect]
     Indication: DIABETES MELLITUS
     Dosage: UNK UNK, TID
  3. HUMULIN NPH [Suspect]
     Indication: DIABETES MELLITUS
     Dosage: 12 U, EACH EVENING
  4. METFORMIN [Concomitant]
  5. CRESTOR [Concomitant]

REACTIONS (2)
  - Cataract [Unknown]
  - Blepharitis [Unknown]
